FAERS Safety Report 6096308-7 (Version None)
Quarter: 2009Q1

REPORT INFORMATION
  Report Type: 
  Country: None (occurrence: None)
  Receive Date: 20090227
  Receipt Date: 20081111
  Transmission Date: 20090719
  Serious: No
  Sender: FDA-Public Use
  Company Number: A0755783A

PATIENT
  Age: 38 Year
  Sex: Female

DRUGS (2)
  1. LAMICTAL [Suspect]
     Indication: POSTPARTUM DEPRESSION
     Dosage: 25MG PER DAY
     Route: 048
     Dates: start: 20080601, end: 20080901
  2. AMBIEN [Concomitant]

REACTIONS (2)
  - ALOPECIA [None]
  - ALOPECIA EFFLUVIUM [None]
